FAERS Safety Report 5166567-3 (Version None)
Quarter: 2006Q4

REPORT INFORMATION
  Report Type: 
  Country: None (occurrence: None)
  Receive Date: 20061129
  Receipt Date: 20061116
  Transmission Date: 20070319
  Serious: Yes (Hospitalization)
  Sender: FDA-Public Use
  Company Number: 2006BI016867

PATIENT
  Age: 52 Year
  Sex: Female
  Weight: 58 kg

DRUGS (5)
  1. ZEVALIN [Suspect]
     Indication: NON-HODGKIN'S LYMPHOMA
     Dosage: 1X; IV
     Route: 042
     Dates: start: 20030821, end: 20030821
  2. ZEVALIN [Suspect]
     Indication: NON-HODGKIN'S LYMPHOMA
     Dosage: 0.4 MCI/KG;1X; IV
     Route: 042
     Dates: start: 20030828, end: 20030828
  3. RITUXIMAB [Concomitant]
  4. ETHINYL ESTRADIOL TAB [Concomitant]
  5. LEVONORGESTREL [Concomitant]

REACTIONS (1)
  - INGUINAL HERNIA [None]
